FAERS Safety Report 6758561-3 (Version None)
Quarter: 2010Q2

REPORT INFORMATION
  Report Type: 
  Country: None (occurrence: None)
  Receive Date: 20100607
  Receipt Date: 20100526
  Transmission Date: 20101027
  Serious: Yes (Other)
  Sender: FDA-Public Use
  Company Number: US-ELI_LILLY_AND_COMPANY-US201006000139

PATIENT
  Age: 67 Year
  Sex: Male

DRUGS (8)
  1. EFFIENT [Suspect]
     Indication: STENT PLACEMENT
     Dosage: 60 MG, OTHER
     Route: 048
     Dates: start: 20100116
  2. EFFIENT [Suspect]
     Dosage: 10 MG, DAILY (1/D)
     Route: 048
     Dates: start: 20100116
  3. UROXATRAL [Concomitant]
     Dosage: 10 MG, DAILY (1/D)
  4. LASIX [Concomitant]
     Dosage: 40 MG, DAILY (1/D)
  5. ASPIRIN [Concomitant]
     Dosage: 81 MG, DAILY (1/D)
  6. REVATIO [Concomitant]
     Indication: PULMONARY HYPERTENSION
     Dosage: 20 MG, 1/2 TABLET TWICE DAILY
  7. ALTACE [Concomitant]
     Dosage: 10 MG, DAILY (1/D)
  8. PEPCID [Concomitant]
     Dosage: 20 MG, 2/D

REACTIONS (2)
  - HYPERSENSITIVITY [None]
  - SKIN HAEMORRHAGE [None]
